FAERS Safety Report 21284458 (Version 2)
Quarter: 2022Q3

REPORT INFORMATION
  Report Type: Spontaneous
  Country: FR (occurrence: FR)
  Receive Date: 20220902
  Receipt Date: 20220908
  Transmission Date: 20221027
  Serious: Yes (Other)
  Sender: FDA-Public Use
  Company Number: FR-AFSSAPS-AN20221913

PATIENT
  Age: 76 Year
  Sex: Male
  Weight: 81 kg

DRUGS (16)
  1. ISTODAX [Suspect]
     Active Substance: ROMIDEPSIN
     Indication: Cutaneous T-cell lymphoma
     Route: 042
     Dates: start: 20220221
  2. CLOPIDOGREL [Suspect]
     Active Substance: CLOPIDOGREL BISULFATE
     Indication: Cardiovascular event prophylaxis
     Route: 048
  3. CYANOCOBALAMIN [Suspect]
     Active Substance: CYANOCOBALAMIN
     Indication: Vitamin B12 deficiency
     Route: 048
     Dates: start: 202112
  4. POTASSIUM CHLORIDE [Suspect]
     Active Substance: POTASSIUM CHLORIDE
     Indication: Hypokalaemia
     Route: 048
     Dates: start: 202101
  5. VENLAFAXINE [Suspect]
     Active Substance: VENLAFAXINE HYDROCHLORIDE
     Indication: Depression
     Route: 048
     Dates: start: 202101
  6. AMLODIPINE [Suspect]
     Active Substance: AMLODIPINE BESYLATE
     Indication: Hypertension
     Route: 048
  7. HYDROCORTISONE [Suspect]
     Active Substance: HYDROCORTISONE
     Indication: Cortisol decreased
     Route: 048
     Dates: start: 202111
  8. PENICILLIN V BENZATHINE [Suspect]
     Active Substance: PENICILLIN V BENZATHINE
     Indication: Antibiotic prophylaxis
     Route: 048
     Dates: start: 202112
  9. LEVOTHYROXINE [Suspect]
     Active Substance: LEVOTHYROXINE
     Indication: Thyroid disorder
     Route: 048
     Dates: start: 202106
  10. FUROSEMIDE [Suspect]
     Active Substance: FUROSEMIDE
     Indication: Hypertension
     Route: 048
     Dates: start: 202101
  11. ATORVASTATIN [Suspect]
     Active Substance: ATORVASTATIN
     Indication: Dyslipidaemia
     Route: 048
     Dates: start: 202108
  12. ACETAMINOPHEN [Suspect]
     Active Substance: ACETAMINOPHEN
     Indication: Pain
     Route: 048
     Dates: start: 202101
  13. IPRATROPIUM BROMIDE\FENOTEROL HYDROBROMIDE [Suspect]
     Active Substance: FENOTEROL HYDROBROMIDE\IPRATROPIUM BROMIDE
     Indication: Chronic obstructive pulmonary disease
     Route: 055
     Dates: start: 202112
  14. JANUVIA [Suspect]
     Active Substance: SITAGLIPTIN PHOSPHATE
     Indication: Type 2 diabetes mellitus
     Route: 048
  15. BISOPROLOL FUMARATE [Suspect]
     Active Substance: BISOPROLOL FUMARATE
     Indication: Hypertension
     Route: 048
  16. CHOLECALCIFEROL [Suspect]
     Active Substance: CHOLECALCIFEROL
     Indication: Vitamin D deficiency
     Dosage: IN AMPOULES
     Route: 048

REACTIONS (1)
  - Mouth ulceration [Not Recovered/Not Resolved]

NARRATIVE: CASE EVENT DATE: 20220725
